FAERS Safety Report 6985753-0 (Version None)
Quarter: 2010Q3

REPORT INFORMATION
  Report Type: 
  Country: None (occurrence: None)
  Receive Date: 20100913
  Receipt Date: 20100901
  Transmission Date: 20110219
  Serious: Yes (Disabling, Other)
  Sender: FDA-Public Use
  Company Number: AVE_01964_2010

PATIENT
  Sex: Female

DRUGS (4)
  1. CLONIDINE [Suspect]
     Indication: PRODUCT USED FOR UNKNOWN INDICATION
     Dosage: (0.3 MG QD, VIA 1/WEEKLY PATCH TRANSDERMAL)
     Route: 062
     Dates: start: 20100801
  2. LAMICTAL [Concomitant]
  3. TRAZODONE HCL [Concomitant]
  4. CTTALOPRAM [Concomitant]

REACTIONS (2)
  - ASTHENIA [None]
  - DIZZINESS [None]
